FAERS Safety Report 5057391-0 (Version None)
Quarter: 2006Q3

REPORT INFORMATION
  Report Type: 
  Country: None (occurrence: None)
  Receive Date: 20060721
  Receipt Date: 20050916
  Transmission Date: 20061208
  Serious: No
  Sender: FDA-Public Use
  Company Number: US-GLAXOSMITHKLINE-A0574541A

PATIENT
  Age: 65 Year
  Sex: Female

DRUGS (8)
  1. AVANDIA [Suspect]
     Dosage: 4MG PER DAY
     Route: 048
  2. PROVICAL [Concomitant]
  3. TRICOR [Concomitant]
  4. DITROPAN [Concomitant]
  5. LOPID [Concomitant]
  6. ZYRTEC [Concomitant]
  7. AMITRIPTYLINE HCL [Concomitant]
  8. AMARYL [Concomitant]

REACTIONS (1)
  - BLOOD GLUCOSE INCREASED [None]
